FAERS Safety Report 7368657-3 (Version None)
Quarter: 2011Q1

REPORT INFORMATION
  Report Type: 
  Country: None (occurrence: None)
  Receive Date: 20110323
  Receipt Date: 20110316
  Transmission Date: 20110831
  Serious: Yes (Other)
  Sender: FDA-Public Use
  Company Number: FR-BRISTOL-MYERS SQUIBB COMPANY-15618820

PATIENT
  Age: 62 Year
  Sex: Male

DRUGS (2)
  1. ONGLYZA [Suspect]
     Route: 048
     Dates: start: 20101008, end: 20110221
  2. GLUCOPHAGE [Concomitant]

REACTIONS (1)
  - EXTRASYSTOLES [None]
